FAERS Safety Report 9422344 (Version 1)
Quarter: 2013Q3

REPORT INFORMATION
  Report Type: Report from Study
  Country: US (occurrence: US)
  Receive Date: 20130726
  Receipt Date: 20130726
  Transmission Date: 20140515
  Serious: Yes (Hospitalization)
  Sender: FDA-Public Use
  Company Number: US-SANOFI-AVENTIS-2013SA074302

PATIENT
  Sex: Female

DRUGS (1)
  1. AUBAGIO [Suspect]
     Route: 048
     Dates: start: 20130220

REACTIONS (5)
  - Kidney infection [Unknown]
  - Sepsis [Unknown]
  - Cystitis [Unknown]
  - Liver disorder [Unknown]
  - Ocular icterus [Unknown]
